FAERS Safety Report 11257254 (Version 1)
Quarter: 2015Q3

REPORT INFORMATION
  Report Type: Spontaneous
  Country: US (occurrence: US)
  Receive Date: 20150709
  Receipt Date: 20150709
  Transmission Date: 20151125
  Serious: No
  Sender: FDA-Public Use
  Company Number: US-009507513-1507USA003730

PATIENT
  Sex: Male

DRUGS (1)
  1. COZAAR [Suspect]
     Active Substance: LOSARTAN POTASSIUM
     Indication: BLOOD PRESSURE MEASUREMENT
     Route: 048

REACTIONS (6)
  - Liver disorder [Unknown]
  - Dizziness [Unknown]
  - Drug ineffective [Unknown]
  - Skin discolouration [Unknown]
  - Back pain [Unknown]
  - Musculoskeletal stiffness [Unknown]
